FAERS Safety Report 4472600-4 (Version None)
Quarter: 2004Q4

REPORT INFORMATION
  Report Type: 
  Country: None (occurrence: None)
  Receive Date: 20041008
  Receipt Date: 20041001
  Transmission Date: 20050328
  Serious: Yes (Life-Threatening, Hospitalization)
  Sender: FDA-Public Use
  Company Number: 200410867BVD

PATIENT
  Age: 69 Year
  Sex: Male
  Weight: 68 kg

DRUGS (1)
  1. AVELOX [Suspect]
     Indication: RESPIRATORY TRACT INFECTION
     Dosage: 400 MG, QD; ORAL
     Route: 048

REACTIONS (2)
  - DIALYSIS [None]
  - HYPERCALCAEMIA [None]
